FAERS Safety Report 25456333 (Version 1)
Quarter: 2025Q2

REPORT INFORMATION
  Report Type: Spontaneous
  Country: FR (occurrence: FR)
  Receive Date: 20250619
  Receipt Date: 20250619
  Transmission Date: 20250717
  Serious: Yes (Death)
  Sender: B BRAUN
  Company Number: FR-B.Braun Medical Inc.-2179018

PATIENT
  Age: 72 Year
  Sex: Male
  Weight: 99 kg

DRUGS (3)
  1. LIDOCAINE HYDROCHLORIDE [Suspect]
     Active Substance: LIDOCAINE HYDROCHLORIDE
     Indication: Anaesthesia procedure
     Dates: start: 20250520
  2. PROPOFOL [Suspect]
     Active Substance: PROPOFOL
  3. SUCCINYLCHOLINE [Suspect]
     Active Substance: SUCCINYLCHOLINE

REACTIONS (1)
  - Anaphylactic shock [Fatal]
